FAERS Safety Report 5078107-8 (Version None)
Quarter: 2006Q3

REPORT INFORMATION
  Report Type: 
  Country: None (occurrence: None)
  Receive Date: 20060811
  Receipt Date: 20060705
  Transmission Date: 20061208
  Serious: Yes (Life-Threatening, Hospitalization)
  Sender: FDA-Public Use
  Company Number: 2006UW13941

PATIENT
  Age: 33762 Day
  Sex: Male

DRUGS (8)
  1. ZOLADEX [Suspect]
     Indication: PROSTATE CANCER
     Route: 058
     Dates: start: 20040319
  2. MEGACE [Suspect]
     Indication: HOT FLUSH
     Route: 048
     Dates: start: 20040719, end: 20060419
  3. TRIAZOLAM [Concomitant]
  4. ACIPHEX [Concomitant]
  5. ASPIRIN [Concomitant]
  6. CITRACAL PLUS D [Concomitant]
  7. MULTI-VITAMIN [Concomitant]
  8. TERAZOSIN HCL [Concomitant]

REACTIONS (10)
  - ATRIOVENTRICULAR BLOCK FIRST DEGREE [None]
  - DEEP VEIN THROMBOSIS [None]
  - DIARRHOEA [None]
  - GASTROENTERITIS VIRAL [None]
  - HYPERHIDROSIS [None]
  - HYPOTENSION [None]
  - NAUSEA [None]
  - PULMONARY EMBOLISM [None]
  - RETROPERITONEAL HAEMATOMA [None]
  - VOMITING [None]
